FAERS Safety Report 10163635 (Version 2)
Quarter: 2014Q2

REPORT INFORMATION
  Report Type: Report from Study
  Country: DE (occurrence: NL)
  Receive Date: 20140509
  Receipt Date: 20140527
  Transmission Date: 20141212
  Serious: Yes (Death)
  Sender: FDA-Public Use
  Company Number: DE-ACTELION-A-US2008-98261

PATIENT
  Age: 51 Year
  Sex: Female

DRUGS (2)
  1. VENTAVIS [Suspect]
     Indication: PULMONARY ARTERIAL HYPERTENSION
     Dosage: UNKNOWN
     Route: 065
     Dates: start: 20081104, end: 20090127
  2. PREDNISONE [Concomitant]

REACTIONS (4)
  - Pulmonary arterial hypertension [Fatal]
  - Dyspnoea [Unknown]
  - Nasopharyngitis [Unknown]
  - Drug ineffective [Unknown]
